FAERS Safety Report 26060466 (Version 1)
Quarter: 2025Q4

REPORT INFORMATION
  Report Type: Spontaneous
  Country: US (occurrence: US)
  Receive Date: 20251118
  Receipt Date: 20251118
  Transmission Date: 20260117
  Serious: No
  Sender: SANOFI AVENTIS
  Company Number: US-SA-2025SA343488

PATIENT
  Sex: Female
  Weight: 82.73 kg

DRUGS (13)
  1. DUPIXENT [Suspect]
     Active Substance: DUPILUMAB
     Indication: Neurodermatitis
     Dosage: 300 MG, QOW
     Route: 058
  2. PREGABALIN [Concomitant]
     Active Substance: PREGABALIN
  3. VENLAFAXINE HCL [Concomitant]
     Active Substance: VENLAFAXINE HYDROCHLORIDE
  4. VITAMIN B12 [Concomitant]
     Active Substance: CYANOCOBALAMIN
  5. RECLAST [Concomitant]
     Active Substance: ZOLEDRONIC ACID
  6. Vitamin D3 K2 [Concomitant]
  7. TRIAMCINOLONE ACETONIDE [Concomitant]
     Active Substance: TRIAMCINOLONE ACETONIDE
  8. LATANOPROST [Concomitant]
     Active Substance: LATANOPROST
  9. OMEPRAZOLE [Concomitant]
     Active Substance: OMEPRAZOLE
  10. FENOFIBRATE [Concomitant]
     Active Substance: FENOFIBRATE
  11. ASPIRIN [Concomitant]
     Active Substance: ASPIRIN
  12. LEVOTHYROXINE SODIUM [Concomitant]
     Active Substance: LEVOTHYROXINE SODIUM
  13. HYDROXYUREA [Concomitant]
     Active Substance: HYDROXYUREA

REACTIONS (2)
  - Headache [Unknown]
  - Diarrhoea [Unknown]
